FAERS Safety Report 13232096 (Version 1)
Quarter: 2017Q1

REPORT INFORMATION
  Report Type: Spontaneous
  Country: CA (occurrence: CA)
  Receive Date: 20170214
  Receipt Date: 20170214
  Transmission Date: 20170428
  Serious: Yes (Other)
  Sender: FDA-Public Use
  Company Number: CA-MYLANLABS-2017M1008455

PATIENT

DRUGS (1)
  1. FREYA 21 [Suspect]
     Active Substance: DESOGESTREL\ETHINYL ESTRADIOL
     Indication: CONTRACEPTION
     Dosage: 0.15 MG/0.03MG, QD
     Route: 048
     Dates: start: 20161223, end: 20170204

REACTIONS (3)
  - Metrorrhagia [Recovered/Resolved]
  - Suicidal ideation [Recovered/Resolved]
  - Abdominal pain [Recovered/Resolved]

NARRATIVE: CASE EVENT DATE: 201701
